FAERS Safety Report 15966999 (Version 1)
Quarter: 2019Q1

REPORT INFORMATION
  Report Type: Spontaneous
  Country: US (occurrence: US)
  Receive Date: 20190215
  Receipt Date: 20190215
  Transmission Date: 20190418
  Serious: Yes (Disabling)
  Sender: FDA-Public Use
  Company Number: US-ASTRAZENECA-2019SE02777

PATIENT
  Age: 27662 Day
  Sex: Female
  Weight: 81.2 kg

DRUGS (2)
  1. BRILINTA [Suspect]
     Active Substance: TICAGRELOR
     Indication: STENT PLACEMENT
     Route: 048
     Dates: start: 20180606, end: 20180608
  2. BRILINTA [Suspect]
     Active Substance: TICAGRELOR
     Indication: ILIAC ARTERY OCCLUSION
     Route: 048
     Dates: start: 20180606, end: 20180608

REACTIONS (1)
  - Dyspnoea [Recovered/Resolved]

NARRATIVE: CASE EVENT DATE: 20180607
